FAERS Safety Report 12984271 (Version 1)
Quarter: 2016Q4

REPORT INFORMATION
  Report Type: Spontaneous
  Country: US (occurrence: US)
  Receive Date: 20161129
  Receipt Date: 20161129
  Transmission Date: 20170207
  Serious: No
  Sender: FDA-Public Use
  Company Number: US-TEIKOKU PHARMA USA-TPU2016-00778

PATIENT
  Sex: Female
  Weight: 67.19 kg

DRUGS (3)
  1. ALEVE [Concomitant]
     Active Substance: NAPROXEN SODIUM
     Indication: MUSCLE SPASMS
     Dosage: OCCASIONALLY
     Dates: start: 201609
  2. LIDOCAINE PATCH [Suspect]
     Active Substance: LIDOCAINE
     Indication: MUSCLE SPASMS
     Dosage: CUT IN HALF, APPLY ONE OR TWO HALVES OR 1 PATCH DAILY FOR 12 HOURS ON AND 12 HOURS OFF TO BACK
     Dates: start: 201610
  3. TYLENOL [Concomitant]
     Active Substance: ACETAMINOPHEN
     Indication: MUSCLE SPASMS
     Dosage: 4 OR 5 TABLETS OF EXTRA STRENGTH
     Route: 048
     Dates: start: 201507

REACTIONS (1)
  - Drug ineffective for unapproved indication [Not Recovered/Not Resolved]
